FAERS Safety Report 8967007 (Version 2)
Quarter: 2012Q4

REPORT INFORMATION
  Report Type: 
  Country: JP (occurrence: JP)
  Receive Date: 20121214
  Receipt Date: 20121228
  Transmission Date: 20130627
  Serious: Yes (Death, Other)
  Sender: FDA-Public Use
  Company Number: JP-ASTELLAS-2012US012222

PATIENT
  Age: 80 Year
  Sex: Female
  Weight: 46 kg

DRUGS (5)
  1. TARCEVA [Suspect]
     Indication: NON-SMALL CELL LUNG CANCER
     Dosage: 150 mg, UID/QD
     Route: 048
     Dates: start: 20120829, end: 20121024
  2. DEPAS [Concomitant]
     Indication: INSOMNIA
     Dosage: 0.5 mg, UID/QD
     Route: 048
     Dates: end: 20121024
  3. OMEPRAL /00661201/ [Concomitant]
     Indication: DUODENAL ULCER
     Dosage: 20 mg, UID/QD
     Route: 048
     Dates: end: 20121024
  4. MUCODYNE [Concomitant]
     Indication: PRODUCTIVE COUGH
     Dosage: 500 mg, tid
     Route: 048
     Dates: end: 20121024
  5. MIYA-BM [Concomitant]
     Indication: PROPHYLAXIS
     Dosage: 1 DF, tid
     Route: 048
     Dates: end: 20121024

REACTIONS (6)
  - Legionella infection [Unknown]
  - Interstitial lung disease [Fatal]
  - Non-small cell lung cancer [Fatal]
  - Duodenal ulcer [Unknown]
  - Pruritus [Not Recovered/Not Resolved]
  - Rash [Unknown]
